FAERS Safety Report 7645594-8 (Version None)
Quarter: 2011Q3

REPORT INFORMATION
  Report Type: 
  Country: None (occurrence: None)
  Receive Date: 20110729
  Receipt Date: 20110725
  Transmission Date: 20111222
  Serious: Yes (Hospitalization)
  Sender: FDA-Public Use
  Company Number: US-PFIZER INC-2011153480

PATIENT
  Sex: Male
  Weight: 74 kg

DRUGS (3)
  1. PLAVIX [Concomitant]
     Indication: CEREBROVASCULAR ACCIDENT
     Dosage: 75 MG, UNK
  2. BENAZEPRIL [Concomitant]
     Indication: HYPERTENSION
     Dosage: 40 MG, UNK
  3. LIPITOR [Suspect]
     Indication: BLOOD CHOLESTEROL INCREASED
     Dosage: 20 MG, 1X/DAY
     Route: 048
     Dates: start: 20110605, end: 20110607

REACTIONS (1)
  - MYOPATHY [None]
